FAERS Safety Report 18642609 (Version 1)
Quarter: 2020Q4

REPORT INFORMATION
  Report Type: Report from Study
  Country: US (occurrence: US)
  Receive Date: 20201221
  Receipt Date: 20201221
  Transmission Date: 20210114
  Serious: Yes (Hospitalization)
  Sender: FDA-Public Use
  Company Number: US-GLAXOSMITHKLINE-US2020GSK212741

PATIENT
  Age: 71 Year
  Sex: Female
  Weight: 46.5 kg

DRUGS (2)
  1. BELANTAMAB MAFODOTIN. [Suspect]
     Active Substance: BELANTAMAB MAFODOTIN
     Dosage: 115.8 MG, CYC
     Route: 042
     Dates: start: 20201013
  2. BELANTAMAB MAFODOTIN. [Suspect]
     Active Substance: BELANTAMAB MAFODOTIN
     Indication: PLASMA CELL MYELOMA
     Dosage: 115.8 MG, CYC
     Route: 042
     Dates: start: 20200917

REACTIONS (3)
  - Oral disorder [Not Recovered/Not Resolved]
  - Pain in jaw [Not Recovered/Not Resolved]
  - Oral mucosa haematoma [Not Recovered/Not Resolved]

NARRATIVE: CASE EVENT DATE: 20201018
